FAERS Safety Report 16402595 (Version 1)
Quarter: 2019Q2

REPORT INFORMATION
  Report Type: Spontaneous
  Country: US (occurrence: US)
  Receive Date: 20190607
  Receipt Date: 20190607
  Transmission Date: 20190711
  Serious: No
  Sender: FDA-Public Use
  Company Number: US-MALLINCKRODT-T201804385

PATIENT
  Sex: Male
  Weight: 70 kg

DRUGS (1)
  1. HYDROCODONE/ACETAMINOPHEN [Suspect]
     Active Substance: ACETAMINOPHEN\HYDROCODONE
     Indication: NEURALGIA
     Dosage: 10/325 MG, 0.5 TO 2 TABLETS A DAY AS NEED
     Route: 048
     Dates: end: 20180926

REACTIONS (7)
  - Neuralgia [Unknown]
  - Condition aggravated [Unknown]
  - Affective disorder [Unknown]
  - Dizziness [Unknown]
  - Product solubility abnormal [Unknown]
  - Nausea [Unknown]
  - Drug ineffective [Unknown]
